FAERS Safety Report 15192806 (Version 4)
Quarter: 2019Q2

REPORT INFORMATION
  Report Type: Report from Study
  Country: JP (occurrence: JP)
  Receive Date: 20180725
  Receipt Date: 20190501
  Transmission Date: 20190711
  Serious: Yes (Hospitalization, Other)
  Sender: FDA-Public Use
  Company Number: JP-INCYTE CORPORATION-2018IN007248

PATIENT

DRUGS (8)
  1. JAKAVI [Suspect]
     Active Substance: RUXOLITINIB
     Dosage: 5 MG, BID
     Route: 048
     Dates: start: 20170726, end: 20171107
  2. JAKAVI [Suspect]
     Active Substance: RUXOLITINIB
     Dosage: 5 MG, BID
     Route: 048
     Dates: start: 20180206, end: 20180405
  3. CEFTRIAXONE SODIUM. [Suspect]
     Active Substance: CEFTRIAXONE SODIUM
     Indication: PNEUMONIA BACTERIAL
     Dosage: 2 G, UNK
     Route: 065
     Dates: start: 20180406, end: 20180409
  4. JAKAVI [Suspect]
     Active Substance: RUXOLITINIB
     Dosage: 5 MG, QD
     Route: 048
     Dates: start: 20171108, end: 20171121
  5. MINOCYCLINE HYDROCHLORIDE. [Suspect]
     Active Substance: MINOCYCLINE HYDROCHLORIDE
     Indication: PNEUMONIA BACTERIAL
     Dosage: 100 MG, UNK
     Route: 065
     Dates: start: 20180406, end: 20180409
  6. JAKAVI [Suspect]
     Active Substance: RUXOLITINIB
     Dosage: 5 MG BID ON EVEN DAYS/5 MG QD ON ODD DAYS
     Route: 048
     Dates: start: 20171122, end: 20180204
  7. JAKAVI [Suspect]
     Active Substance: RUXOLITINIB
     Indication: POLYCYTHAEMIA VERA
     Dosage: 5 MG, QD
     Route: 048
     Dates: start: 20170531, end: 20170725
  8. JAKAVI [Suspect]
     Active Substance: RUXOLITINIB
     Dosage: 5 MG, QD
     Route: 048
     Dates: start: 20180530

REACTIONS (16)
  - Blood lactate dehydrogenase increased [Unknown]
  - Aortic dissection [Recovering/Resolving]
  - Decreased appetite [Unknown]
  - Cough [Unknown]
  - Rash generalised [Recovering/Resolving]
  - Computerised tomogram thorax abnormal [Unknown]
  - Movement disorder [Unknown]
  - Abdominal distension [Unknown]
  - Pleural effusion [Unknown]
  - Pneumonia bacterial [Recovering/Resolving]
  - Back pain [Unknown]
  - Cardiac failure congestive [Recovering/Resolving]
  - Abdominal pain upper [Unknown]
  - Polycythaemia vera [Recovering/Resolving]
  - Platelet count decreased [Recovering/Resolving]
  - Dyspnoea [Unknown]

NARRATIVE: CASE EVENT DATE: 20170715
